FAERS Safety Report 24605902 (Version 2)
Quarter: 2025Q3

REPORT INFORMATION
  Report Type: Report from Study
  Country: US (occurrence: US)
  Receive Date: 20241111
  Receipt Date: 20250809
  Transmission Date: 20251020
  Serious: Yes (Hospitalization, Other)
  Sender: ALEXION PHARMACEUTICALS
  Company Number: US-AstraZeneca-CH-00729368A

PATIENT
  Sex: Female

DRUGS (1)
  1. OLAPARIB [Suspect]
     Active Substance: OLAPARIB

REACTIONS (9)
  - Neoplasm malignant [Unknown]
  - Product dose omission issue [Unknown]
  - Confusional state [Unknown]
  - Pain [Unknown]
  - Alopecia [Unknown]
  - Dry mouth [Unknown]
  - Skin lesion [Unknown]
  - Blister [Unknown]
  - Pain [Recovered/Resolved]
